FAERS Safety Report 7889872-6 (Version None)
Quarter: 2011Q4

REPORT INFORMATION
  Report Type: 
  Country: None (occurrence: None)
  Receive Date: 20111103
  Receipt Date: 20111021
  Transmission Date: 20120403
  Serious: Yes (Hospitalization)
  Sender: FDA-Public Use
  Company Number: US-GLAXOSMITHKLINE-B0742692A

PATIENT
  Age: 52 Year
  Sex: Male
  Weight: 118.2 kg

DRUGS (5)
  1. ZOCOR [Concomitant]
  2. NORVASC [Concomitant]
  3. AVANDIA [Suspect]
     Indication: DIABETES MELLITUS
     Dosage: 4MG PER DAY
     Route: 048
     Dates: start: 20020101, end: 20071031
  4. METFORMIN HCL [Concomitant]
  5. ZETIA [Concomitant]

REACTIONS (4)
  - CARDIAC DISORDER [None]
  - CORONARY ARTERY DISEASE [None]
  - CARDIAC FAILURE CONGESTIVE [None]
  - STENT PLACEMENT [None]
